FAERS Safety Report 15152157 (Version 1)
Quarter: 2018Q3

REPORT INFORMATION
  Report Type: Spontaneous
  Country: FR (occurrence: FR)
  Receive Date: 20180717
  Receipt Date: 20180717
  Transmission Date: 20181010
  Serious: Yes (Hospitalization)
  Sender: FDA-Public Use
  Company Number: FR-TEVA-2018-FR-927291

PATIENT
  Age: 62 Year
  Sex: Male

DRUGS (19)
  1. METHOTREXATE. [Suspect]
     Active Substance: METHOTREXATE
     Indication: ACUTE LYMPHOCYTIC LEUKAEMIA
     Route: 037
     Dates: start: 20160829, end: 20160829
  2. CYCLOPHOSPHAMIDE. [Suspect]
     Active Substance: CYCLOPHOSPHAMIDE
     Route: 042
     Dates: start: 20160901, end: 20160915
  3. TAZOCILLINE [Concomitant]
     Active Substance: PIPERACILLIN SODIUM\TAZOBACTAM SODIUM
     Route: 042
     Dates: start: 20160902, end: 20160910
  4. AMIKLIN [Concomitant]
     Active Substance: AMIKACIN SULFATE
     Route: 042
     Dates: start: 20160909, end: 20160924
  5. AMBISOME 50 MG POWDER FOR SUSPENSION OF LIPOSOMES FOR INFUSION [Concomitant]
     Route: 042
     Dates: start: 20160902, end: 20160910
  6. VINCRISTINE (SULFATE DE) [Concomitant]
     Active Substance: VINCRISTINE SULFATE
     Route: 042
  7. ACLOTINE 100 UI/ML,POWDER AND SOLVENT FOR SOLUTION FOR INJECTION [Concomitant]
     Route: 042
     Dates: start: 20160912
  8. DAUNORUBICINE [Concomitant]
     Active Substance: DAUNORUBICIN
     Route: 042
  9. KIDROLASE [Suspect]
     Active Substance: ASPARAGINASE
     Indication: ACUTE LYMPHOCYTIC LEUKAEMIA
     Route: 042
     Dates: start: 20160901, end: 20160910
  10. MABTHERA [Concomitant]
     Active Substance: RITUXIMAB
     Route: 042
     Dates: start: 20160901, end: 20160902
  11. VANCOMYCINE [Concomitant]
     Active Substance: VANCOMYCIN
     Route: 042
     Dates: start: 20160902, end: 20160910
  12. AMLODIPINE [Concomitant]
     Active Substance: AMLODIPINE BESYLATE
     Route: 048
     Dates: start: 20160906, end: 20160919
  13. VINDESINE (SULFATE DE) [Concomitant]
     Active Substance: VINDESINE
     Route: 042
  14. MEROPENEM ANHYDRE [Concomitant]
     Active Substance: MEROPENEM
     Route: 042
     Dates: start: 20160910, end: 20161001
  15. BISOPROLOL (FUMARATE ACIDE DE) [Concomitant]
     Active Substance: BISOPROLOL FUMARATE
     Route: 048
     Dates: end: 20160927
  16. GRANOCYTE [Concomitant]
     Active Substance: LENOGRASTIM
     Route: 042
     Dates: start: 20160917
  17. PENTACARINAT 300 MG, POWDER FOR AEROSOL AND FOR PARENTAL USE [Concomitant]
     Route: 055
     Dates: end: 20160825
  18. CIFLOX [Suspect]
     Active Substance: CIPROFLOXACIN
     Indication: ACUTE LYMPHOCYTIC LEUKAEMIA
     Route: 042
     Dates: start: 20160910, end: 20160915
  19. ZELITREX [Concomitant]
     Active Substance: VALACYCLOVIR HYDROCHLORIDE
     Route: 048

REACTIONS (3)
  - Cholangitis [Not Recovered/Not Resolved]
  - Hepatic steatosis [Not Recovered/Not Resolved]
  - Cholestasis [Not Recovered/Not Resolved]

NARRATIVE: CASE EVENT DATE: 20160921
